FAERS Safety Report 24230116 (Version 2)
Quarter: 2025Q4

REPORT INFORMATION
  Report Type: Report from Study
  Country: US (occurrence: None)
  Receive Date: 20240820
  Receipt Date: 20251203
  Transmission Date: 20260118
  Serious: No
  Sender: INCYTE
  Company Number: US-INCYTE CORPORATION-2024IN007587

PATIENT

DRUGS (4)
  1. JAKAFI [Suspect]
     Active Substance: RUXOLITINIB
     Indication: Myelofibrosis
     Dosage: 5 MG/10 MG
  2. JAKAFI [Suspect]
     Active Substance: RUXOLITINIB
     Dosage: TAKE 5MG IN THE MORNING  AND 10MG IN THE EVENING
     Route: 065
  3. JAKAFI [Suspect]
     Active Substance: RUXOLITINIB
     Dosage: 5MG IN AM, 10MG IN PM
  4. JAKAFI [Suspect]
     Active Substance: RUXOLITINIB
     Dosage: 15 MILLIGRAM, BID

REACTIONS (4)
  - Malaise [Unknown]
  - Withdrawal syndrome [Unknown]
  - Product availability issue [Unknown]
  - Ill-defined disorder [Unknown]
